FAERS Safety Report 24096808 (Version 1)
Quarter: 2024Q3

REPORT INFORMATION
  Report Type: Spontaneous
  Country: FR (occurrence: FR)
  Receive Date: 20240716
  Receipt Date: 20240716
  Transmission Date: 20241017
  Serious: Yes (Other)
  Sender: PFIZER
  Company Number: FR-PFIZER INC-202400213401

PATIENT
  Age: 15 Year
  Sex: Male
  Weight: 54 kg

DRUGS (1)
  1. CLINDAMYCIN [Suspect]
     Active Substance: CLINDAMYCIN
     Indication: Wisdom teeth removal
     Dosage: 1800 MG, DAILY, 2 IN THE MORNING 2 IN THE NOON AND 2 IN THE EVENING
     Dates: start: 20240708

REACTIONS (2)
  - Gastroenteritis viral [Unknown]
  - Off label use [Unknown]
